FAERS Safety Report 4723434-4 (Version None)
Quarter: 2005Q3

REPORT INFORMATION
  Report Type: 
  Country: None (occurrence: None)
  Receive Date: 20050725
  Receipt Date: 20050718
  Transmission Date: 20060218
  Serious: Yes (Hospitalization, Other)
  Sender: FDA-Public Use
  Company Number: AU-BRISTOL-MYERS SQUIBB COMPANY-13040795

PATIENT
  Age: 29 Year
  Sex: Male
  Weight: 73 kg

DRUGS (10)
  1. EFAVIRENZ [Suspect]
     Indication: HIV TEST POSITIVE
     Route: 048
     Dates: start: 20050419, end: 20050614
  2. COMBIVIR [Suspect]
     Indication: HIV TEST POSITIVE
     Dosage: 300/600 MG
     Route: 048
     Dates: start: 20050419, end: 20050520
  3. TENOFOVIR [Concomitant]
     Indication: HIV TEST POSITIVE
     Route: 048
     Dates: start: 20050520
  4. LAMIVUDINE [Concomitant]
     Indication: HIV TEST POSITIVE
     Route: 048
     Dates: start: 20050520
  5. CEFUROXIME [Concomitant]
     Route: 048
     Dates: start: 20050520
  6. BACTRIM DS [Concomitant]
     Route: 048
     Dates: start: 20050208
  7. DIPROSONE [Concomitant]
     Route: 048
     Dates: start: 20040806
  8. ASCORBIC ACID [Concomitant]
     Route: 048
     Dates: start: 20040101
  9. MULTI-VITAMINS [Concomitant]
     Route: 048
     Dates: start: 20040101
  10. ZINC [Concomitant]
     Route: 048
     Dates: start: 20040101

REACTIONS (4)
  - GENERALISED OEDEMA [None]
  - LETHARGY [None]
  - PANCYTOPENIA [None]
  - PYREXIA [None]
